FAERS Safety Report 6697231-7 (Version None)
Quarter: 2010Q2

REPORT INFORMATION
  Report Type: 
  Country: None (occurrence: None)
  Receive Date: 20100426
  Receipt Date: 20100415
  Transmission Date: 20101027
  Serious: Yes (Other)
  Sender: FDA-Public Use
  Company Number: JP-JNJFOC-20100404207

PATIENT
  Age: 9 Decade
  Sex: Male

DRUGS (2)
  1. TOPIRAMATE [Suspect]
     Indication: EPILEPSY
     Route: 048
  2. PHENYTOIN SODIUM [Suspect]
     Indication: EPILEPSY
     Route: 048

REACTIONS (1)
  - ILEUS PARALYTIC [None]
